FAERS Safety Report 20965267 (Version 2)
Quarter: 2022Q2

REPORT INFORMATION
  Report Type: Report from Study
  Country: SE (occurrence: None)
  Receive Date: 20220616
  Receipt Date: 20220621
  Transmission Date: 20220721
  Serious: Yes (Hospitalization)
  Sender: FDA-Public Use
  Company Number: SE-ROCHE-3111031

PATIENT
  Age: 55 Year
  Sex: Male
  Weight: 88.3 kg

DRUGS (42)
  1. OCRELIZUMAB [Suspect]
     Active Substance: OCRELIZUMAB
     Indication: Relapsing multiple sclerosis
     Dosage: BASELINE WEEK 1?SUBSEQUENT DOSE ON 27/JUN/2012 (WEEK 2).
     Route: 042
     Dates: start: 20120614, end: 20120614
  2. OCRELIZUMAB [Suspect]
     Active Substance: OCRELIZUMAB
     Dosage: SUBSEQUENT DOSE:  15/MAY/2013 (WEEK 48), 31/OCT/2013 (WEEK 72), DELAYED DOSING VISIT 25/OCT/2019 AND
     Route: 042
     Dates: start: 20121129, end: 20121129
  3. PLACEBO [Suspect]
     Active Substance: UNSPECIFIED INGREDIENT
     Indication: Relapsing multiple sclerosis
     Route: 058
     Dates: start: 20140418, end: 20140422
  4. OCRELIZUMAB [Suspect]
     Active Substance: OCRELIZUMAB
     Indication: Relapsing multiple sclerosis
     Dosage: NEXT DOSE ON O6/MAY/2014 (OLE WEEK 2)?300 MG FOR 14 DAY AFTER 600 MG FOE EVERY 6 MONTH
     Route: 042
     Dates: start: 20140423, end: 20140423
  5. OCRELIZUMAB [Suspect]
     Active Substance: OCRELIZUMAB
     Dosage: OLE WEEK 24?SUBSEQUENT DOSE: 30/MAR/2015 (OLE WEEK 48), 15/SEP/2015 (OLE WEEK 72), 19/FEB/2016 (OLE
     Route: 042
     Dates: start: 20141007, end: 20141007
  6. ACETAMINOPHEN [Concomitant]
     Active Substance: ACETAMINOPHEN
     Indication: Headache
     Dosage: BASELINE (WEEK 1)?NEXT DOSE ON, 27/JUN/2012 (WEEK 2), 29/NOV/2012(WEEK 24), 15/MAY/2013 (WEEK 48), 3
     Dates: start: 20120614, end: 20120614
  7. ACETAMINOPHEN [Concomitant]
     Active Substance: ACETAMINOPHEN
     Indication: Myalgia
  8. ACETAMINOPHEN [Concomitant]
     Active Substance: ACETAMINOPHEN
     Indication: Back pain
  9. KLEMASTIN [Concomitant]
     Dosage: BASELINE OLE WEEK 0
     Dates: start: 20140423
  10. DESLORATADINE [Concomitant]
     Active Substance: DESLORATADINE
     Dosage: BASELINE WEEK 2??06/MAY/2014 (OLE WEEK 2 ), 15/SEP/2015(OLE WEEK 72 ), 19/FEB/2016(OLE WEEK 96), 24/
     Dates: start: 20140505
  11. EBASTINE [Concomitant]
     Active Substance: EBASTINE
     Dosage: BASE LINE OLE WEEK 24
  12. ANTIHISTAMINES NOS [Concomitant]
     Active Substance: ANTIHISTAMINES NOS
     Dosage: BASELINE (WEEK 1)?27/JUN/2012(WEEK 2), 29/NOV/2012(WEEK 24), 15/MAY/2013(WEEK 48), 31/OCT/2013(WEEK
     Dates: start: 20120614, end: 20120614
  13. FENOXIMETYLPENICILLIN [Concomitant]
     Indication: Erysipelas
     Dates: start: 20220502
  14. NAPROXEN [Concomitant]
     Active Substance: NAPROXEN
     Indication: Arthralgia
     Dosage: NEXT ON 21/APR/2017
     Dates: start: 20170904
  15. NAPROXEN [Concomitant]
     Active Substance: NAPROXEN
     Indication: Neck pain
     Dates: start: 20191209, end: 20200302
  16. NAPROXEN [Concomitant]
     Active Substance: NAPROXEN
     Indication: Muscle spasms
     Dates: start: 20150617, end: 20151207
  17. NAPROXEN [Concomitant]
     Active Substance: NAPROXEN
     Indication: Tendon disorder
  18. PREDNISOLONE [Concomitant]
     Active Substance: PREDNISOLONE
     Indication: Myalgia
     Dosage: NEXT DOSE ON 11/JUL/2021 (5 G), 12/JULY/2021, 31/JUL/2021, 15/OCT/2021(2.5), 22/NOV/2021( 5 G), 19/F
     Dates: start: 20210418
  19. PREDNISOLONE [Concomitant]
     Active Substance: PREDNISOLONE
     Indication: Arthralgia
     Dates: start: 20201028, end: 20201117
  20. PREDNISOLONE [Concomitant]
     Active Substance: PREDNISOLONE
     Indication: Polymyalgia rheumatica
     Dates: start: 20201209, end: 20201229
  21. PREDNISOLONE [Concomitant]
     Active Substance: PREDNISOLONE
     Dates: start: 20201209, end: 20210118
  22. PREDNISOLONE [Concomitant]
     Active Substance: PREDNISOLONE
     Dates: start: 20201230, end: 20210302
  23. PREDNISOLONE [Concomitant]
     Active Substance: PREDNISOLONE
     Dates: start: 20210119, end: 20210413
  24. PREDNISOLONE [Concomitant]
     Active Substance: PREDNISOLONE
     Dates: start: 20210303, end: 20210416
  25. PREDNISOLONE [Concomitant]
     Active Substance: PREDNISOLONE
     Dates: start: 20210929, end: 20211014
  26. PREDNISOLONE [Concomitant]
     Active Substance: PREDNISOLONE
     Dates: start: 20200504, end: 20200531
  27. PREDNISOLONE [Concomitant]
     Active Substance: PREDNISOLONE
     Dates: start: 20200601, end: 20200630
  28. PREDNISOLONE [Concomitant]
     Active Substance: PREDNISOLONE
     Dates: start: 20200701, end: 20200706
  29. PREDNISOLONE [Concomitant]
     Active Substance: PREDNISOLONE
     Dates: start: 20200707, end: 20200928
  30. PREDNISOLONE [Concomitant]
     Active Substance: PREDNISOLONE
     Dates: start: 20200929, end: 20201027
  31. PREDNISOLONE [Concomitant]
     Active Substance: PREDNISOLONE
     Dates: start: 20201118, end: 20201208
  32. PREDNISOLONE [Concomitant]
     Active Substance: PREDNISOLONE
     Dates: start: 20200320, end: 20200409
  33. PREDNISOLONE [Concomitant]
     Active Substance: PREDNISOLONE
     Dates: start: 20200410, end: 20200503
  34. PREDNISOLONE [Concomitant]
     Active Substance: PREDNISOLONE
     Dates: start: 20200504, end: 20200531
  35. PREDNISOLONE [Concomitant]
     Active Substance: PREDNISOLONE
     Dates: start: 20200601, end: 20200630
  36. PREDNISOLONE [Concomitant]
     Active Substance: PREDNISOLONE
     Dates: start: 20200707, end: 20200928
  37. PREDNISOLONE [Concomitant]
     Active Substance: PREDNISOLONE
     Dates: start: 20200929, end: 20201027
  38. PREDNISOLONE [Concomitant]
     Active Substance: PREDNISOLONE
     Dates: start: 20201118, end: 20201208
  39. PREDNISOLONE [Concomitant]
     Active Substance: PREDNISOLONE
     Dates: start: 20200320, end: 20200409
  40. PREDNISOLONE [Concomitant]
     Active Substance: PREDNISOLONE
     Dates: start: 20200206, end: 20200206
  41. PREDNISOLONE [Concomitant]
     Active Substance: PREDNISOLONE
     Dates: start: 20220522, end: 20220611
  42. PREDNISOLONE [Concomitant]
     Active Substance: PREDNISOLONE
     Dates: start: 20220612

REACTIONS (2)
  - Cognitive disorder [Not Recovered/Not Resolved]
  - Fatigue [Not Recovered/Not Resolved]

NARRATIVE: CASE EVENT DATE: 20220530
